APPROVED DRUG PRODUCT: TOBRAMYCIN
Active Ingredient: TOBRAMYCIN
Strength: 0.3%
Dosage Form/Route: SOLUTION/DROPS;OPHTHALMIC
Application: A063176 | Product #001
Applicant: ALCON PHARMACEUTICALS LTD
Approved: May 25, 1994 | RLD: No | RS: No | Type: DISCN